FAERS Safety Report 10025492 (Version 1)
Quarter: 2014Q1

REPORT INFORMATION
  Report Type: Spontaneous
  Country: US (occurrence: None)
  Receive Date: 20140314
  Receipt Date: 20140314
  Transmission Date: 20141002
  Serious: Yes (Life-Threatening, Hospitalization)
  Sender: FDA-Public Use
  Company Number: US-2014-10448

PATIENT
  Age: 50 Year
  Sex: Male

DRUGS (8)
  1. OPC-41061 (TOLVAPTAN) TABLET [Suspect]
     Indication: CONGENITAL CYSTIC KIDNEY DISEASE
     Route: 048
     Dates: start: 20101209, end: 20140305
  2. ATENOLOL (ATENOLOL) [Concomitant]
  3. LISINOPRIL (LISINOPRIL) [Concomitant]
  4. ALLOPURINOL (ALLOPURINOL) [Concomitant]
  5. LIPITOR (ATORVASTATIN CALCIUM) [Concomitant]
  6. NEXIUM (ESOMEPRAZOLE MAGNESIUM) [Concomitant]
  7. MULTIVITAMIN (VITAMIN NOS) [Concomitant]
  8. CALCITRIOL (CALCITRIOL) [Concomitant]

REACTIONS (3)
  - Cardiac arrest [None]
  - Pulseless electrical activity [None]
  - Bradycardia [None]
